FAERS Safety Report 20154313 (Version 4)
Quarter: 2022Q1

REPORT INFORMATION
  Report Type: Spontaneous
  Country: US (occurrence: US)
  Receive Date: 20211207
  Receipt Date: 20220123
  Transmission Date: 20220424
  Serious: No
  Sender: FDA-Public Use
  Company Number: US-AIMMUNE THERAPEUTICS, INC.-2021AIMT00740

PATIENT

DRUGS (6)
  1. PALFORZIA [Suspect]
     Active Substance: PEANUT
     Indication: Food allergy
     Dosage: 3 MG, 1X/DAY
     Route: 048
     Dates: start: 20211118, end: 20211124
  2. PALFORZIA [Suspect]
     Active Substance: PEANUT
     Dosage: 3 MG, ONCE, LAST DOSE PRIOR VOMITING AND FLUSHING
     Route: 048
     Dates: start: 20211123, end: 20211123
  3. PALFORZIA [Suspect]
     Active Substance: PEANUT
     Dosage: 1.5 MG, 1X/DAY
     Route: 048
     Dates: start: 20211125, end: 20211127
  4. PALFORZIA [Suspect]
     Active Substance: PEANUT
     Dosage: 1.5 MG, ONCE, LAST DOSE PRIOR CRAMPS
     Route: 048
     Dates: start: 20211125, end: 20211125
  5. PALFORZIA [Suspect]
     Active Substance: PEANUT
     Dosage: 1 MG, 1X/DAY
     Route: 048
     Dates: start: 20211128, end: 20211202
  6. PALFORZIA [Suspect]
     Active Substance: PEANUT
     Dosage: 1 MG, ONCE, LAST DOSE PRIOR TO VOMITING AND CRAMPS
     Route: 048
     Dates: start: 20211129, end: 20211129

REACTIONS (3)
  - Flushing [Recovered/Resolved]
  - Vomiting [Recovered/Resolved]
  - Abdominal pain [Recovered/Resolved]

NARRATIVE: CASE EVENT DATE: 20211123
